FAERS Safety Report 8545177 (Version 2)
Quarter: 2013Q2

REPORT INFORMATION
  Report Type: Spontaneous
  Country: US (occurrence: US)
  Receive Date: 20120503
  Receipt Date: 20130417
  Transmission Date: 20140414
  Serious: Yes (Other)
  Sender: FDA-Public Use
  Company Number: US-ROCHE-784138

PATIENT
  Sex: Female
  Weight: 58.11 kg

DRUGS (1)
  1. ACCUTANE [Suspect]
     Indication: ACNE
     Route: 065
     Dates: start: 20000728, end: 2001

REACTIONS (4)
  - Colitis ulcerative [Recovering/Resolving]
  - Inflammatory bowel disease [Unknown]
  - Emotional distress [Unknown]
  - Depression [Unknown]
